FAERS Safety Report 5318806-3 (Version None)
Quarter: 2007Q2

REPORT INFORMATION
  Report Type: 
  Country: None (occurrence: None)
  Receive Date: 20070504
  Receipt Date: 20070504
  Transmission Date: 20071010
  Serious: Yes (Disabling)
  Sender: FDA-Public Use
  Company Number: None

PATIENT
  Age: 50 Year
  Sex: Male

DRUGS (1)
  1. BACTRIM DS [Suspect]
     Indication: FURUNCLE
     Dosage: 1 PO BID
     Route: 048
     Dates: start: 20070314, end: 20070325

REACTIONS (1)
  - URTICARIA [None]
